FAERS Safety Report 5521034-X (Version None)
Quarter: 2007Q4

REPORT INFORMATION
  Report Type: 
  Country: None (occurrence: None)
  Receive Date: 20071119
  Receipt Date: 20071107
  Transmission Date: 20080405
  Serious: Yes (Hospitalization)
  Sender: FDA-Public Use
  Company Number: FR-GENENTECH-249611

PATIENT
  Sex: Female

DRUGS (3)
  1. AVASTIN [Suspect]
     Indication: BREAST CANCER METASTATIC
     Dosage: 950 MG, UNK
     Dates: start: 20070703
  2. TAXOL [Suspect]
     Indication: BREAST CANCER
     Dosage: 170 MG, UNK
     Dates: start: 20070703, end: 20070905
  3. ARIMIDEX [Concomitant]
     Indication: DRUG USE FOR UNKNOWN INDICATION

REACTIONS (2)
  - DYSPHAGIA [None]
  - DYSPHONIA [None]
